FAERS Safety Report 15629865 (Version 4)
Quarter: 2019Q1

REPORT INFORMATION
  Report Type: Spontaneous
  Country: JP (occurrence: JP)
  Receive Date: 20181117
  Receipt Date: 20190319
  Transmission Date: 20190417
  Serious: Yes (Death)
  Sender: FDA-Public Use
  Company Number: PHJP2018JP017480

PATIENT
  Age: 54 Year
  Sex: Female
  Weight: 46 kg

DRUGS (8)
  1. RINDERON V [Concomitant]
     Active Substance: BETAMETHASONE VALERATE
     Indication: ANALGESIC THERAPY
     Dosage: 0.5 MG, QD
     Route: 048
  2. CYMBALTA [Concomitant]
     Active Substance: DULOXETINE HYDROCHLORIDE
     Indication: NEURALGIA
     Dosage: 20 MG, QD
     Route: 048
  3. PROTECADIN [Concomitant]
     Active Substance: LAFUTIDINE
     Indication: PROPHYLAXIS
     Dosage: 10 MG, BID
     Route: 048
  4. AROMASIN [Concomitant]
     Active Substance: EXEMESTANE
     Indication: BREAST CANCER RECURRENT
     Dosage: 25 MG, QD
     Route: 048
     Dates: start: 20180815, end: 20181029
  5. LYRICA [Concomitant]
     Active Substance: PREGABALIN
     Indication: NEURALGIA
     Dosage: 25 MG, QD
     Route: 048
  6. OXYCODONE [Concomitant]
     Active Substance: OXYCODONE
     Indication: PAIN
     Dosage: 20 MG, BID
     Route: 048
  7. AFINITOR [Suspect]
     Active Substance: EVEROLIMUS
     Indication: BREAST CANCER
     Dosage: 10 MG, QD
     Route: 048
     Dates: start: 20180815, end: 20180925
  8. MAGMITT [Concomitant]
     Active Substance: MAGNESIUM OXIDE
     Indication: CONSTIPATION PROPHYLAXIS
     Dosage: 1000 MG, UNK
     Route: 048

REACTIONS (17)
  - Respiratory failure [Fatal]
  - Goitre [Unknown]
  - Laryngeal discomfort [Unknown]
  - Thyroxine free decreased [Not Recovered/Not Resolved]
  - Blood thyroid stimulating hormone increased [Not Recovered/Not Resolved]
  - Lymphangiosis carcinomatosa [Fatal]
  - Pleural effusion [Fatal]
  - Localised oedema [Unknown]
  - Hypothyroidism [Recovering/Resolving]
  - Neck pain [Unknown]
  - Malignant neoplasm progression [Fatal]
  - Tri-iodothyronine free decreased [Not Recovered/Not Resolved]
  - Breast cancer [Fatal]
  - Thyroiditis subacute [Unknown]
  - Pneumonia aspiration [Fatal]
  - Metastases to lung [Fatal]
  - Dyspnoea [Fatal]

NARRATIVE: CASE EVENT DATE: 201809
